FAERS Safety Report 6574057-6 (Version None)
Quarter: 2010Q1

REPORT INFORMATION
  Report Type: 
  Country: None (occurrence: None)
  Receive Date: 20100208
  Receipt Date: 20100127
  Transmission Date: 20100710
  Serious: Yes (Other)
  Sender: FDA-Public Use
  Company Number: US-JNJCH-2010003087

PATIENT
  Age: 18 Month
  Sex: Female
  Weight: 8.6 kg

DRUGS (1)
  1. CHILDREN'S BENADRYL ALLERGY [Suspect]
     Indication: ACCIDENTAL EXPOSURE
     Dosage: TEXT:UNSPECIFIED
     Route: 048
     Dates: start: 20100126, end: 20100126

REACTIONS (6)
  - ACCIDENTAL EXPOSURE [None]
  - APNOEA [None]
  - EUPHORIC MOOD [None]
  - HALLUCINATION [None]
  - HEART RATE INCREASED [None]
  - RESPIRATORY RATE INCREASED [None]
